FAERS Safety Report 18858572 (Version 6)
Quarter: 2021Q2

REPORT INFORMATION
  Report Type: Report from Study
  Country: FR (occurrence: FR)
  Receive Date: 20210208
  Receipt Date: 20210602
  Transmission Date: 20210717
  Serious: Yes (Other)
  Sender: FDA-Public Use
  Company Number: FR-VIIV HEALTHCARE LIMITED-FR2021028034

PATIENT
  Age: 44 Year
  Sex: Male

DRUGS (11)
  1. RILPIVIRINE [Suspect]
     Active Substance: RILPIVIRINE
     Indication: HIV INFECTION
     Dosage: 3 ML, SINGLE
     Route: 030
     Dates: start: 20170920, end: 20170920
  2. CABOTEGRAVIR [Suspect]
     Active Substance: CABOTEGRAVIR
     Indication: HIV INFECTION
     Dosage: 3 ML, SINGLE
     Route: 030
     Dates: start: 20170920, end: 20170920
  3. AMLODIPINE [Concomitant]
     Active Substance: AMLODIPINE BESYLATE
     Indication: HYPERTENSION
     Dosage: 10 MG, 1D
     Route: 048
     Dates: start: 20180703
  4. ABACAVIRSULPHATE+DOLUTEGRAVIR+LAMIVUDINE [Suspect]
     Active Substance: ABACAVIR SULFATE\DOLUTEGRAVIR SODIUM\LAMIVUDINE
     Indication: HIV INFECTION
     Dosage: 1 DF, 1D (INDUCTION PERIOD)
     Route: 048
     Dates: start: 20170328, end: 20170815
  5. CABOTEGRAVIR [Suspect]
     Active Substance: CABOTEGRAVIR
     Dosage: 2 ML, CYC
     Route: 030
     Dates: start: 20171019, end: 20210108
  6. HYDROCHLOROTHIAZIDE. [Concomitant]
     Active Substance: HYDROCHLOROTHIAZIDE
     Indication: HYPERTENSION
     Dosage: 25 MG, 1D
     Route: 048
     Dates: start: 20190430
  7. RILPIVIRINE [Suspect]
     Active Substance: RILPIVIRINE
     Dosage: 2 ML, CYC
     Route: 030
     Dates: start: 20171019, end: 20210108
  8. CABOTEGRAVIR [Suspect]
     Active Substance: CABOTEGRAVIR
     Indication: HIV INFECTION
     Dosage: 1 DF, 1D (MAINTENANCE PERIOD)
     Route: 048
     Dates: start: 20170816, end: 20170919
  9. XANAX [Concomitant]
     Active Substance: ALPRAZOLAM
     Indication: ANXIETY
     Dosage: 0.5 MG, 1D
     Route: 048
     Dates: start: 20201208
  10. IRBESARTAN. [Concomitant]
     Active Substance: IRBESARTAN
     Indication: HYPERTENSION
     Dosage: 300 MG, 1D
     Route: 048
     Dates: start: 20190430
  11. RILPIVIRINE [Suspect]
     Active Substance: RILPIVIRINE
     Indication: HIV INFECTION
     Dosage: 1 DF, 1D (MAINTENANCE PERIOD)
     Route: 048
     Dates: start: 20170816, end: 20170919

REACTIONS (1)
  - Suicidal ideation [Recovered/Resolved]

NARRATIVE: CASE EVENT DATE: 20210203
